FAERS Safety Report 7042784-2 (Version None)
Quarter: 2010Q4

REPORT INFORMATION
  Report Type: 
  Country: None (occurrence: None)
  Receive Date: 20101013
  Receipt Date: 20091009
  Transmission Date: 20110411
  Serious: No
  Sender: FDA-Public Use
  Company Number: US-ASTRAZENECA-2009SE13809

PATIENT
  Age: 9937 Day
  Sex: Female
  Weight: 49.4 kg

DRUGS (1)
  1. SYMBICORT [Suspect]
     Dosage: 160/4.5
     Route: 055

REACTIONS (2)
  - ABNORMAL DREAMS [None]
  - ANXIETY [None]
